FAERS Safety Report 8384772-X (Version None)
Quarter: 2012Q2

REPORT INFORMATION
  Report Type: 
  Country: None (occurrence: None)
  Receive Date: 20120524
  Receipt Date: 20120522
  Transmission Date: 20120825
  Serious: Yes (Death, Other)
  Sender: FDA-Public Use
  Company Number: VE-ABBOTT-12P-178-0938450-00

PATIENT
  Sex: Female

DRUGS (1)
  1. HUMIRA [Suspect]
     Indication: RHEUMATOID ARTHRITIS
     Route: 058
     Dates: start: 20110223, end: 20110301

REACTIONS (3)
  - BEDRIDDEN [None]
  - PLATELET COUNT DECREASED [None]
  - ENDOCARDITIS BACTERIAL [None]
